FAERS Safety Report 6583035-2 (Version None)
Quarter: 2010Q1

REPORT INFORMATION
  Report Type: 
  Country: None (occurrence: None)
  Receive Date: 20100216
  Receipt Date: 20100205
  Transmission Date: 20100710
  Serious: Yes (Other)
  Sender: FDA-Public Use
  Company Number: B0598495A

PATIENT
  Age: 33 Year
  Sex: Male

DRUGS (2)
  1. CIGANON CQ1 [Suspect]
     Indication: SMOKING CESSATION THERAPY
     Dosage: 14MG PER DAY
     Route: 062
     Dates: end: 20091001
  2. CHAMPIX [Suspect]
     Indication: SMOKING CESSATION THERAPY
     Route: 065

REACTIONS (11)
  - DEPRESSED LEVEL OF CONSCIOUSNESS [None]
  - EPILEPSY [None]
  - FOAMING AT MOUTH [None]
  - HEADACHE [None]
  - LETHARGY [None]
  - NASAL CONGESTION [None]
  - PYREXIA [None]
  - RESPIRATORY DISTRESS [None]
  - SALIVARY HYPERSECRETION [None]
  - SYNCOPE [None]
  - TREMOR [None]
